FAERS Safety Report 8791767 (Version 4)
Quarter: 2014Q3

REPORT INFORMATION
  Report Type: Spontaneous
  Country: US (occurrence: US)
  Receive Date: 20120918
  Receipt Date: 20140823
  Transmission Date: 20150326
  Serious: Yes (Hospitalization, Other)
  Sender: FDA-Public Use
  Company Number: US-009507513-2008-183726-NL

PATIENT
  Sex: Female
  Weight: 108.39 kg

DRUGS (5)
  1. PROZAC [Concomitant]
     Active Substance: FLUOXETINE HYDROCHLORIDE
     Indication: PRODUCT USED FOR UNKNOWN INDICATION
     Dosage: UNK DF, UNK
     Dates: end: 2005
  2. ALBUTEROL. [Concomitant]
     Active Substance: ALBUTEROL
     Indication: PRODUCT USED FOR UNKNOWN INDICATION
     Dosage: UNK, PRN
  3. GLUCOPHAGE [Concomitant]
     Active Substance: METFORMIN HYDROCHLORIDE
     Indication: PRODUCT USED FOR UNKNOWN INDICATION
     Dosage: UNK DF, UNK
  4. PRILOSEC [Concomitant]
     Active Substance: OMEPRAZOLE MAGNESIUM
     Indication: PRODUCT USED FOR UNKNOWN INDICATION
  5. NUVARING [Suspect]
     Active Substance: ETHINYL ESTRADIOL\ETONOGESTREL
     Indication: CONTRACEPTION
     Dosage: CONTINUING: NO
     Route: 067
     Dates: start: 200504, end: 20050705

REACTIONS (33)
  - Urinary tract infection [Unknown]
  - Night sweats [Unknown]
  - Drug ineffective [Recovered/Resolved]
  - Cholelithiasis [Recovered/Resolved]
  - Drug ineffective [Unknown]
  - Chlamydia test positive [Unknown]
  - Polycystic ovaries [Unknown]
  - Ovulation pain [Unknown]
  - Adenoidectomy [Unknown]
  - Pain in extremity [Unknown]
  - Peripheral venous disease [Unknown]
  - Non-alcoholic steatohepatitis [Unknown]
  - Deep vein thrombosis [Recovered/Resolved]
  - Chlamydia test positive [Unknown]
  - Cholecystectomy [Unknown]
  - Constipation [Unknown]
  - Hypercoagulation [Unknown]
  - Menstruation irregular [Unknown]
  - Hepatic steatosis [Unknown]
  - Hypersensitivity [Unknown]
  - Hot flush [Unknown]
  - Dysmenorrhoea [Recovered/Resolved]
  - Pollakiuria [Unknown]
  - Back pain [Unknown]
  - Tonsillectomy [Unknown]
  - Oedema peripheral [Unknown]
  - Maternal exposure before pregnancy [Unknown]
  - Bronchitis [Unknown]
  - Pain in extremity [Unknown]
  - Depression [Not Recovered/Not Resolved]
  - Sleep disorder [Unknown]
  - Upper respiratory tract infection [Unknown]
  - Ovarian cyst ruptured [Unknown]

NARRATIVE: CASE EVENT DATE: 2005
